FAERS Safety Report 8882417 (Version 1)
Quarter: 2012Q4

REPORT INFORMATION
  Report Type: Report from Study
  Country: CZ (occurrence: CZ)
  Receive Date: 20121102
  Receipt Date: 20121102
  Transmission Date: 20130627
  Serious: Yes (Hospitalization)
  Sender: FDA-Public Use
  Company Number: PHHO2010CZ01611

PATIENT
  Age: 86 Year
  Sex: Male
  Weight: 83 kg

DRUGS (1)
  1. ALISKIREN [Suspect]
     Indication: CARDIAC FAILURE ACUTE
     Route: 048
     Dates: start: 20100111

REACTIONS (7)
  - Head injury [Recovered/Resolved]
  - Fall [Recovered/Resolved]
  - Swelling face [Recovered/Resolved]
  - Cerebral arteriosclerosis [Recovered/Resolved]
  - Vascular dementia [Recovered/Resolved]
  - Neurosis [Recovered/Resolved]
  - Asthenia [Recovered/Resolved]
